FAERS Safety Report 4491442-7 (Version None)
Quarter: 2004Q4

REPORT INFORMATION
  Report Type: 
  Country: None (occurrence: None)
  Receive Date: 20041103
  Receipt Date: 20041103
  Transmission Date: 20050328
  Serious: No
  Sender: FDA-Public Use
  Company Number: None

PATIENT

DRUGS (7)
  1. XOPENEX [Suspect]
     Dosage: SOLUTION
  2. ACCUNEB [Suspect]
     Dosage: SOLUTION
  3. DUONEB [Suspect]
     Dosage: SOLUTION
  4. INTAL [Suspect]
     Dosage: SOLUTION
  5. ALBUTEROL [Suspect]
     Dosage: SOLUTION
  6. ATROVENT [Suspect]
     Dosage: SOLUTION
  7. BION TEAS [Suspect]
     Dosage: SOLUNTION

REACTIONS (1)
  - MEDICATION ERROR [None]
